FAERS Safety Report 7638467-8 (Version None)
Quarter: 2011Q3

REPORT INFORMATION
  Report Type: 
  Country: None (occurrence: None)
  Receive Date: 20110725
  Receipt Date: 20110725
  Transmission Date: 20111222
  Serious: No
  Sender: FDA-Public Use
  Company Number: None

PATIENT
  Age: 51 Year
  Sex: Female
  Weight: 65.318 kg

DRUGS (3)
  1. HIZENTRA [Suspect]
     Indication: IMMUNODEFICIENCY COMMON VARIABLE
     Dosage: 10.71 GM Q WEEK SC
     Route: 058
     Dates: start: 20100627, end: 20110126
  2. HIZENTRA [Suspect]
  3. HIZENTRA [Suspect]

REACTIONS (2)
  - HAEMOLYSIS [None]
  - HAEMOGLOBIN DECREASED [None]
